FAERS Safety Report 9195102 (Version 1)
Quarter: 2013Q1

REPORT INFORMATION
  Report Type: Spontaneous
  Country: US (occurrence: US)
  Receive Date: 20130328
  Receipt Date: 20130328
  Transmission Date: 20140127
  Serious: No
  Sender: FDA-Public Use
  Company Number: US-ALLERGAN-1216996US

PATIENT
  Age: 81 Year
  Sex: Female

DRUGS (2)
  1. LATISSE 0.03% [Suspect]
     Indication: GROWTH OF EYELASHES
     Dosage: 2 GTT, SINGLE
     Route: 061
     Dates: start: 20121008, end: 20121008
  2. ORAL MEDICATIONS NOS [Concomitant]
     Indication: PRODUCT USED FOR UNKNOWN INDICATION
     Dosage: UNK
     Route: 048

REACTIONS (3)
  - Eyelid pain [Recovered/Resolved]
  - Eyelid oedema [Recovered/Resolved]
  - Erythema of eyelid [Recovered/Resolved]
